FAERS Safety Report 22196460 (Version 1)
Quarter: 2023Q2

REPORT INFORMATION
  Report Type: Spontaneous
  Country: US (occurrence: None)
  Receive Date: 20230410
  Receipt Date: 20230410
  Transmission Date: 20230721
  Serious: No
  Sender: FDA-Public Use
  Company Number: None

PATIENT
  Age: 80 Year
  Sex: Male
  Weight: 111.13 kg

DRUGS (15)
  1. BOSULIF [Suspect]
     Active Substance: BOSUTINIB MONOHYDRATE
     Indication: Renal cancer
     Dosage: FREQUENCY : DAILY;?
     Route: 048
  2. ASPIRIN [Concomitant]
     Active Substance: ASPIRIN
  3. ALOGLIPTIN [Concomitant]
     Active Substance: ALOGLIPTIN
  4. AMIODARONE [Concomitant]
     Active Substance: AMIODARONE
  5. FUROSEMIDE [Concomitant]
     Active Substance: FUROSEMIDE
  6. LEVOTHYROXINE [Concomitant]
     Active Substance: LEVOTHYROXINE
  7. METFORMIN [Concomitant]
  8. METOPROLOL [Concomitant]
     Active Substance: METOPROLOL
  9. NYSTATIN  TRIAMCINOLONE [Concomitant]
  10. PACEMACKER [Concomitant]
  11. POTASSIUM [Concomitant]
  12. SIMVASTATIN [Concomitant]
  13. TAMSULOSIN [Concomitant]
  14. WARFARIN [Concomitant]
     Active Substance: WARFARIN
  15. ZINC [Concomitant]
     Active Substance: ZINC

REACTIONS (5)
  - Scrotal swelling [None]
  - Muscle swelling [None]
  - Peripheral swelling [None]
  - Fluid retention [None]
  - Dyspnoea [None]
